FAERS Safety Report 6937593-6 (Version None)
Quarter: 2010Q3

REPORT INFORMATION
  Report Type: 
  Country: None (occurrence: None)
  Receive Date: 20100823
  Receipt Date: 20100810
  Transmission Date: 20110219
  Serious: Yes (Hospitalization)
  Sender: FDA-Public Use
  Company Number: US-ELI_LILLY_AND_COMPANY-US201008003667

PATIENT
  Sex: Female

DRUGS (4)
  1. FORTEO [Suspect]
     Indication: OSTEOPOROSIS
     Dosage: 20 UG, DAILY (1/D)
     Route: 065
  2. ZESTORETIC [Concomitant]
  3. METFORMIN [Concomitant]
  4. VITAMIN D [Concomitant]

REACTIONS (9)
  - BACK PAIN [None]
  - COUGH [None]
  - DEHYDRATION [None]
  - DIARRHOEA [None]
  - GAIT DISTURBANCE [None]
  - HEART RATE IRREGULAR [None]
  - INFLUENZA [None]
  - JOINT SWELLING [None]
  - PULMONARY CONGESTION [None]
